FAERS Safety Report 8926894 (Version 1)
Quarter: 2012Q4

REPORT INFORMATION
  Report Type: 
  Country: US (occurrence: US)
  Receive Date: 20121127
  Receipt Date: 20121127
  Transmission Date: 20130627
  Serious: Yes (Other)
  Sender: FDA-Public Use
  Company Number: CHPA2012US023760

PATIENT
  Age: 66 Year
  Sex: Female

DRUGS (1)
  1. BENEFIBER UNKNOWN [Suspect]
     Indication: SUPPLEMENTATION THERAPY
     Dosage: 2 tsp daily
     Route: 048
     Dates: end: 2012

REACTIONS (2)
  - Diverticulitis [Not Recovered/Not Resolved]
  - Underdose [Unknown]
